FAERS Safety Report 9347739 (Version 1)
Quarter: 2013Q2

REPORT INFORMATION
  Report Type: Spontaneous
  Country: US (occurrence: US)
  Receive Date: 20130614
  Receipt Date: 20130614
  Transmission Date: 20140414
  Serious: No
  Sender: FDA-Public Use
  Company Number: US-PFIZER INC-2013176245

PATIENT
  Age: 84 Year
  Sex: Female

DRUGS (1)
  1. METRONIDAZOLE [Suspect]
     Dosage: UNK
     Route: 048

REACTIONS (1)
  - Chest discomfort [Unknown]
